FAERS Safety Report 21539741 (Version 1)
Quarter: 2022Q4

REPORT INFORMATION
  Report Type: Other
  Country: GB (occurrence: GB)
  Receive Date: 20221102
  Receipt Date: 20221102
  Transmission Date: 20230113
  Serious: No
  Sender: FDA-Public Use
  Company Number: GB-MHRA-MED-202210171808397480-KDLHS

PATIENT
  Age: 42 Year
  Sex: Male

DRUGS (1)
  1. SERTRALINE [Suspect]
     Active Substance: SERTRALINE HYDROCHLORIDE
     Indication: Product used for unknown indication
     Dosage: 50 MILLIGRAM, QD
     Route: 048
     Dates: start: 20220908, end: 20221017

REACTIONS (1)
  - Trismus [Not Recovered/Not Resolved]

NARRATIVE: CASE EVENT DATE: 20220901
